FAERS Safety Report 8294240-1 (Version None)
Quarter: 2012Q2

REPORT INFORMATION
  Report Type: 
  Country: None (occurrence: None)
  Receive Date: 20120418
  Receipt Date: 20120417
  Transmission Date: 20120825
  Serious: Yes (Hospitalization)
  Sender: FDA-Public Use
  Company Number: PHHY2012NL008303

PATIENT
  Sex: Male

DRUGS (6)
  1. BICALUTAMIDE [Concomitant]
     Dosage: UNK UKN, UNK
     Dates: start: 20111122
  2. ZOMETA [Suspect]
     Indication: PROSTATE CANCER METASTATIC
     Dosage: 4 MG/100 ML SOLUTION FOR INFUSION 1X PER 28 DAYS
     Route: 042
     Dates: start: 20111116
  3. ZOMETA [Suspect]
     Dosage: 4 MG/100 ML SOLUTION FOR INFUSION 1X PER 28 DAYS
     Route: 042
     Dates: start: 20111207
  4. ZOMETA [Suspect]
     Dosage: 4 MG/100 ML SOLUTION FOR INFUSION 1X PER 28 DAYS
     Route: 042
     Dates: start: 20120102
  5. ZOMETA [Suspect]
     Dosage: 4 MG/100 ML SOLUTION FOR INFUSION 1X PER 28 DAYS
     Route: 042
     Dates: start: 20120131, end: 20120207
  6. CALCICHEW D3 [Concomitant]
     Dosage: UNK UKN, UNK
     Dates: start: 20111116

REACTIONS (1)
  - PATHOLOGICAL FRACTURE [None]
